FAERS Safety Report 7344213-8 (Version None)
Quarter: 2011Q1

REPORT INFORMATION
  Report Type: 
  Country: None (occurrence: None)
  Receive Date: 20110310
  Receipt Date: 20100824
  Transmission Date: 20110831
  Serious: No
  Sender: FDA-Public Use
  Company Number: A0877412A

PATIENT
  Age: 49 Year
  Sex: Female

DRUGS (1)
  1. NICORETTE (MINT) [Suspect]
     Dates: start: 20100820, end: 20100820

REACTIONS (3)
  - MALAISE [None]
  - MIGRAINE [None]
  - ASTHENIA [None]
